FAERS Safety Report 11599271 (Version 1)
Quarter: 2015Q3

REPORT INFORMATION
  Report Type: Spontaneous
  Country: US (occurrence: US)
  Receive Date: 20150916
  Receipt Date: 20150916
  Transmission Date: 20151125
  Serious: No
  Sender: FDA-Public Use
  Company Number: US-ELI_LILLY_AND_COMPANY-US200711006182

PATIENT
  Sex: Male

DRUGS (7)
  1. TIKOSYN [Concomitant]
     Active Substance: DOFETILIDE
  2. FORTEO [Suspect]
     Active Substance: TERIPARATIDE
     Indication: OSTEOPOROSIS
     Dates: start: 200709
  3. SPIRIVA [Concomitant]
     Active Substance: TIOTROPIUM BROMIDE MONOHYDRATE
  4. MUCINEX [Concomitant]
     Active Substance: GUAIFENESIN
  5. WARFARIN [Concomitant]
     Active Substance: WARFARIN
     Dosage: 3 MG, QOD
  6. WARFARIN [Concomitant]
     Active Substance: WARFARIN
     Dosage: 2 MG, QOD
  7. XOPENEX [Concomitant]
     Active Substance: LEVALBUTEROL HYDROCHLORIDE

REACTIONS (2)
  - Chronic obstructive pulmonary disease [Not Recovered/Not Resolved]
  - Dyspnoea [Recovering/Resolving]

NARRATIVE: CASE EVENT DATE: 2007
